FAERS Safety Report 5279033-1 (Version None)
Quarter: 2007Q1

REPORT INFORMATION
  Report Type: 
  Country: None (occurrence: None)
  Receive Date: 20070328
  Receipt Date: 20061205
  Transmission Date: 20070707
  Serious: Yes (Hospitalization)
  Sender: FDA-Public Use
  Company Number: US-AMGEN-US202501

PATIENT
  Sex: Male

DRUGS (14)
  1. NEULASTA [Suspect]
     Indication: CHEMOTHERAPY
     Route: 058
     Dates: start: 20061129
  2. CYTOXAN [Concomitant]
     Route: 065
     Dates: start: 20061128
  3. ADRIAMYCIN PFS [Concomitant]
     Route: 065
     Dates: start: 20061128
  4. VINCRISTINE [Concomitant]
     Route: 065
     Dates: start: 20061128
  5. PREDNISONE [Concomitant]
     Route: 065
     Dates: start: 20061128
  6. RITUXAN [Concomitant]
     Route: 065
     Dates: start: 20061128
  7. ALLOPURINOL [Concomitant]
     Route: 065
     Dates: start: 20061128
  8. EMEND [Concomitant]
     Route: 065
     Dates: start: 20061128
  9. MONOPRIL [Concomitant]
     Route: 065
  10. MICRONASE [Concomitant]
     Route: 065
  11. DIOVAN [Concomitant]
     Route: 065
  12. NORVASC [Concomitant]
     Route: 065
  13. ZOCOR [Concomitant]
     Route: 065
  14. AVANDIA [Concomitant]
     Route: 064

REACTIONS (2)
  - DRUG INEFFECTIVE [None]
  - NEUTROPENIA [None]
